FAERS Safety Report 10783811 (Version 1)
Quarter: 2015Q1

REPORT INFORMATION
  Report Type: Report from Study
  Country: JP (occurrence: JP)
  Receive Date: 20150210
  Receipt Date: 20150210
  Transmission Date: 20150721
  Serious: Yes (Hospitalization)
  Sender: FDA-Public Use
  Company Number: PHHY2015JP008820

PATIENT
  Age: 65 Year
  Sex: Female
  Weight: 55 kg

DRUGS (30)
  1. SOLU-MEDROL [Concomitant]
     Active Substance: METHYLPREDNISOLONE SODIUM SUCCINATE
     Dosage: 1 DF, QD
     Route: 051
     Dates: start: 20120203, end: 20120205
  2. HIRUDOID [Concomitant]
     Active Substance: GLYCOSAMINOGLYCANS
     Indication: DERMATITIS
     Route: 061
     Dates: start: 20120229, end: 20130328
  3. GLAKAY [Concomitant]
     Indication: OSTEOPOROSIS
     Dosage: 1 DF, QD
     Route: 048
     Dates: start: 20120906
  4. TRAMCET [Concomitant]
     Active Substance: ACETAMINOPHEN\TRAMADOL
     Indication: BACK PAIN
     Dosage: 1 DF, PRN
     Route: 048
     Dates: start: 20130801
  5. LIORESAL [Concomitant]
     Active Substance: BACLOFEN
     Indication: MUSCLE SPASMS
     Dosage: 1 DF, QD
     Route: 048
  6. GASTER [Concomitant]
     Active Substance: FAMOTIDINE
     Indication: GASTRIC ULCER
     Dosage: 1 DF, QD
     Route: 048
     Dates: end: 20130110
  7. BETAFERON [Concomitant]
     Active Substance: INTERFERON BETA-1B
     Indication: MULTIPLE SCLEROSIS
     Route: 058
     Dates: start: 20020711, end: 20110825
  8. BONOTEO [Concomitant]
     Active Substance: MINODRONIC ACID
     Indication: OSTEOPOROSIS
     Dosage: 1 DF, QD
     Route: 048
     Dates: end: 20120516
  9. AVONEX [Concomitant]
     Active Substance: INTERFERON BETA-1A
     Indication: MULTIPLE SCLEROSIS
     Dosage: 1 DF, QW
     Route: 030
     Dates: start: 20110825, end: 20120116
  10. MOHRUS [Concomitant]
     Active Substance: KETOPROFEN
     Indication: COMPRESSION FRACTURE
     Route: 061
     Dates: start: 20120229, end: 20130328
  11. NABOAL [Concomitant]
     Indication: BACK PAIN
     Dosage: 1 DF, QD
     Route: 061
     Dates: start: 20121115
  12. SOLU-MEDROL [Concomitant]
     Active Substance: METHYLPREDNISOLONE SODIUM SUCCINATE
     Dosage: 1 DF, QD
     Route: 051
     Dates: start: 20110601, end: 20110603
  13. SOLU-MEDROL [Concomitant]
     Active Substance: METHYLPREDNISOLONE SODIUM SUCCINATE
     Dosage: 1 DF, QD
     Route: 051
     Dates: start: 20120209, end: 20120210
  14. SOLU-MEDROL [Concomitant]
     Active Substance: METHYLPREDNISOLONE SODIUM SUCCINATE
     Dosage: 1 DF, QD
     Route: 051
     Dates: start: 20120215, end: 20120217
  15. INTEBAN [Concomitant]
     Active Substance: INDOMETHACIN
     Indication: BACK PAIN
     Dosage: 1 DF, QD
     Route: 061
     Dates: start: 20120229, end: 20121114
  16. ALFAROL [Concomitant]
     Active Substance: ALFACALCIDOL
     Indication: OSTEOPOROSIS
     Dosage: 1 DF, QD
     Route: 048
     Dates: start: 20120906
  17. GILENYA [Suspect]
     Active Substance: FINGOLIMOD HYDROCHLORIDE
     Dosage: 0.5 MG, QD
     Route: 048
     Dates: start: 20120608
  18. SOLU-MEDROL [Concomitant]
     Active Substance: METHYLPREDNISOLONE SODIUM SUCCINATE
     Indication: MULTIPLE SCLEROSIS
     Dosage: 1 DF, QD
     Route: 051
     Dates: start: 20110525, end: 20110527
  19. ELCITONIN [Concomitant]
     Active Substance: ELCATONIN
     Indication: OSTEOPOROSIS
     Dosage: 1 DF, QD
     Route: 051
     Dates: start: 20120210, end: 20120302
  20. MOBIC [Concomitant]
     Active Substance: MELOXICAM
     Indication: COMPRESSION FRACTURE
     Dosage: 1 DF, QD
     Route: 048
     Dates: start: 20121101, end: 20130403
  21. MAGLAX [Concomitant]
     Active Substance: MAGNESIUM OXIDE
     Indication: CONSTIPATION
     Dosage: 1 DF, QD
     Route: 048
  22. SOLU-MEDROL [Concomitant]
     Active Substance: METHYLPREDNISOLONE SODIUM SUCCINATE
     Dosage: 1 DF, QD
     Route: 051
     Dates: start: 20110608, end: 20110610
  23. RIVOTRIL [Concomitant]
     Active Substance: CLONAZEPAM
     Indication: PAIN IN EXTREMITY
     Dosage: 1 DF, QD
     Route: 048
     Dates: end: 20120513
  24. HYALEIN [Concomitant]
     Active Substance: HYALURONATE SODIUM
     Indication: DRY EYE
     Route: 031
     Dates: start: 20131114
  25. EBRANTIL [Concomitant]
     Active Substance: URAPIDIL
     Indication: NEUROGENIC BLADDER
     Dosage: 1 DF, QD
     Route: 048
  26. LOXONIN [Concomitant]
     Active Substance: LOXOPROFEN SODIUM
     Indication: COMPRESSION FRACTURE
     Dosage: 1 DF, QD
     Route: 061
     Dates: start: 20120229
  27. FLOMOX//CEFCAPENE PIVOXIL HYDROCHLORIDE [Concomitant]
     Active Substance: CEFCAPENE PIVOXIL HYDROCHLORIDE HYDRATE
     Indication: PERIODONTITIS
     Dosage: 1 DF, QD
     Route: 048
     Dates: start: 20130307, end: 20130309
  28. GILENYA [Suspect]
     Active Substance: FINGOLIMOD HYDROCHLORIDE
     Indication: MULTIPLE SCLEROSIS
     Dosage: 0.5 MG, QD
     Route: 048
     Dates: start: 20120221, end: 20120406
  29. VOLTAREN ^CIBA-GEIGY^ [Concomitant]
     Indication: BACK PAIN
     Dosage: 1 DF, QD
     Route: 048
     Dates: start: 20130704, end: 20130731
  30. TAPROS MINI [Concomitant]
     Indication: GLAUCOMA
     Route: 031
     Dates: start: 20140128

REACTIONS (2)
  - Hepatic function abnormal [Recovering/Resolving]
  - Herpes zoster [Recovered/Resolved]

NARRATIVE: CASE EVENT DATE: 20120228
